FAERS Safety Report 7211585-4 (Version None)
Quarter: 2011Q1

REPORT INFORMATION
  Report Type: 
  Country: None (occurrence: None)
  Receive Date: 20110105
  Receipt Date: 20110103
  Transmission Date: 20110831
  Serious: Yes (Other)
  Sender: FDA-Public Use
  Company Number: US-PFIZER INC-2010175679

PATIENT
  Sex: Female

DRUGS (1)
  1. CHANTIX [Suspect]
     Indication: SMOKING CESSATION THERAPY
     Dosage: 0.5 MG, 1X/DAY
     Route: 048
     Dates: start: 20100101, end: 20100101

REACTIONS (6)
  - SUICIDAL IDEATION [None]
  - DEPRESSION [None]
  - DRUG INEFFECTIVE [None]
  - ABNORMAL DREAMS [None]
  - PSYCHOTIC DISORDER [None]
  - HALLUCINATION [None]
